FAERS Safety Report 8564255-4 (Version None)
Quarter: 2012Q3

REPORT INFORMATION
  Report Type: 
  Country: None (occurrence: None)
  Receive Date: 20120803
  Receipt Date: 20120725
  Transmission Date: 20120928
  Serious: Yes (Other)
  Sender: FDA-Public Use
  Company Number: DK-JNJFOC-20120800659

PATIENT

DRUGS (1)
  1. REMICADE [Suspect]
     Indication: PSORIASIS
     Dosage: (LOADING INFUSIONS AT WEEK 0, 2, 6, MAINTENANCE INFUSIONS EVERY 8 WEEKS
     Route: 042
     Dates: start: 20030601, end: 20101101

REACTIONS (2)
  - PUSTULAR PSORIASIS [None]
  - ALOPECIA AREATA [None]
